FAERS Safety Report 13736095 (Version 2)
Quarter: 2017Q3

REPORT INFORMATION
  Report Type: Spontaneous
  Country: DE (occurrence: DE)
  Receive Date: 20170710
  Receipt Date: 20170822
  Transmission Date: 20171127
  Serious: Yes (Death, Other)
  Sender: FDA-Public Use
  Company Number: DE-SHIRE-DE201714686

PATIENT
  Age: 28 Year
  Sex: Male
  Weight: 57 kg

DRUGS (23)
  1. NACL [Concomitant]
     Active Substance: SODIUM CHLORIDE
     Indication: PRODUCT USED FOR UNKNOWN INDICATION
  2. SALBUTAMOL [Concomitant]
     Active Substance: ALBUTEROL
     Indication: DYSPNOEA
  3. MSI [Concomitant]
     Active Substance: MORPHINE SULFATE
     Indication: SEVERE ACUTE RESPIRATORY SYNDROME
  4. TAVOR (LORAZEPAM) [Concomitant]
     Active Substance: LORAZEPAM
     Indication: VERTIGO
  5. TAVOR (LORAZEPAM) [Concomitant]
     Active Substance: LORAZEPAM
     Indication: INSOMNIA
  6. AMBROXOL [Concomitant]
     Active Substance: AMBROXOL
     Indication: PRODUCT USED FOR UNKNOWN INDICATION
  7. FENTANYL 1 A PHARMA [Concomitant]
     Indication: PAIN
  8. MSI [Concomitant]
     Active Substance: MORPHINE SULFATE
     Indication: PAIN
  9. ROBINUL [Concomitant]
     Active Substance: GLYCOPYRROLATE
     Indication: RALES
     Route: 058
  10. MOVICOL [Concomitant]
     Active Substance: POLYETHYLENE GLYCOL 3350\POTASSIUM CHLORIDE\SODIUM BICARBONATE\SODIUM CHLORIDE
     Indication: BOWEL MOVEMENT IRREGULARITY
  11. ABSTRAL [Concomitant]
     Active Substance: FENTANYL CITRATE
     Indication: PAIN
  12. TAVOR (LORAZEPAM) [Concomitant]
     Active Substance: LORAZEPAM
     Indication: ANXIETY
  13. TAVOR (LORAZEPAM) [Concomitant]
     Active Substance: LORAZEPAM
     Indication: AGITATION
  14. FENTANYL 1 A PHARMA [Concomitant]
     Indication: DYSPNOEA
  15. NOVAMINSULFON [Concomitant]
     Active Substance: METAMIZOLE
     Indication: PAIN
  16. LAXANS                             /00064401/ [Concomitant]
     Indication: CONSTIPATION
  17. ELAPRASE [Suspect]
     Active Substance: IDURSULFASE
     Indication: MUCOPOLYSACCHARIDOSIS II
     Dosage: 10 MG/WEEK
     Route: 042
     Dates: start: 200401, end: 20170626
  18. ROBINUL [Concomitant]
     Active Substance: GLYCOPYRROLATE
     Indication: INCREASED BRONCHIAL SECRETION
  19. MIDAZOLAM [Concomitant]
     Active Substance: MIDAZOLAM HYDROCHLORIDE
     Indication: SEVERE ACUTE RESPIRATORY SYNDROME
  20. TAVOR (LORAZEPAM) [Concomitant]
     Active Substance: LORAZEPAM
     Indication: DYSPNOEA
  21. FREKA-CLYSS [Concomitant]
     Indication: CONSTIPATION
  22. KEPPRA [Concomitant]
     Active Substance: LEVETIRACETAM
     Indication: SEIZURE
  23. ABSTRAL [Concomitant]
     Active Substance: FENTANYL CITRATE
     Indication: DYSPNOEA

REACTIONS (1)
  - Death [Fatal]

NARRATIVE: CASE EVENT DATE: 20170630
